FAERS Safety Report 9356456 (Version 2)
Quarter: 2013Q2

REPORT INFORMATION
  Report Type: Spontaneous
  Country: GB (occurrence: GB)
  Receive Date: 20130619
  Receipt Date: 20130619
  Transmission Date: 20140414
  Serious: Yes (Hospitalization, Congenital Anomaly, Other)
  Sender: FDA-Public Use
  Company Number: GB-RB-008226-09

PATIENT
  Age: 1 Day
  Sex: Male
  Weight: 2.86 kg

DRUGS (6)
  1. SUBUTEX [Suspect]
     Indication: PRODUCT USED FOR UNKNOWN INDICATION
     Dosage: DOSING INFORMATION UNKNOWN.
     Route: 064
  2. SUBOXONE [Suspect]
     Indication: INTENTIONAL DRUG MISUSE
     Dosage: MOTHER TOOK 14 MG DAILY
     Route: 064
  3. FORTISIP [Suspect]
     Indication: PRODUCT USED FOR UNKNOWN INDICATION
     Dosage: DOSING INFORMATION UNKNOWN.
     Route: 064
  4. DIAZEPAM [Suspect]
     Indication: PRODUCT USED FOR UNKNOWN INDICATION
     Dosage: DOSING INFORMATION UNKNOWN.
     Route: 064
  5. CLONAZEPAM [Suspect]
     Indication: PRODUCT USED FOR UNKNOWN INDICATION
     Dosage: DOSING INFORMATION UNKNOWN.
     Route: 064
  6. VENTOLIN [Suspect]
     Indication: PRODUCT USED FOR UNKNOWN INDICATION
     Dosage: DOSING INFORMATION UNKNOWN.
     Route: 064

REACTIONS (8)
  - Foetal exposure during pregnancy [Recovered/Resolved]
  - Foetal cystic hygroma [Unknown]
  - Micrognathia [Unknown]
  - Poor sucking reflex [Unknown]
  - Regurgitation [Unknown]
  - Oxygen saturation decreased [Unknown]
  - Drug withdrawal syndrome neonatal [Unknown]
  - Umbilical cord abnormality [None]
